FAERS Safety Report 7276701-7 (Version None)
Quarter: 2011Q1

REPORT INFORMATION
  Report Type: 
  Country: None (occurrence: None)
  Receive Date: 20110204
  Receipt Date: 20110202
  Transmission Date: 20110831
  Serious: Yes (Life-Threatening, Hospitalization)
  Sender: FDA-Public Use
  Company Number: US-GENENTECH-278281

PATIENT
  Sex: Male
  Weight: 172 kg

DRUGS (22)
  1. AVELOX [Suspect]
     Indication: PRODUCT USED FOR UNKNOWN INDICATION
     Dosage: UNK MG, QD
  2. FLONASE [Concomitant]
     Indication: ASTHMA
     Dosage: UNK
     Dates: start: 20050407
  3. ASTELIN [Concomitant]
     Indication: HYPERSENSITIVITY
     Dosage: 137 A?G, BID
     Route: 045
     Dates: start: 20050407
  4. ZYRTEC [Concomitant]
     Indication: HYPERSENSITIVITY
     Dosage: 10 MG, UNK
     Route: 048
     Dates: start: 20050407
  5. ASPIRIN [Concomitant]
     Indication: PROPHYLAXIS
     Dosage: 8 MG, QD
     Route: 048
  6. POY SIAN [Concomitant]
     Indication: ASTHMA
     Dosage: UNK
  7. ALBUTEROL [Concomitant]
     Indication: ASTHMA
     Dosage: UNK
     Dates: start: 20050407
  8. PREDNISONE [Concomitant]
     Indication: ASTHMA
     Dosage: 20 MG, UNK
     Route: 048
     Dates: start: 20050407
  9. AUGMENTIN '125' [Concomitant]
     Indication: PRODUCT USED FOR UNKNOWN INDICATION
     Dosage: 125 MG, BID
  10. PROVENTIL [Concomitant]
     Indication: ASTHMA
     Dosage: UNK
     Dates: start: 20050407
  11. XOPENEX [Concomitant]
     Indication: ASTHMA
     Dosage: 1.25 MG, PRN
     Dates: start: 20050407
  12. NASONEX [Concomitant]
     Indication: HYPERSENSITIVITY
     Dosage: 50 A?G, QD
     Route: 045
     Dates: start: 20050407
  13. PREDNISONE [Concomitant]
     Indication: HYPERSENSITIVITY
     Dosage: 1 TABLET, BID
     Dates: start: 20090209, end: 20090214
  14. XOLAIR [Suspect]
     Indication: ASTHMA
     Dosage: 300 MG, Q2W
     Route: 058
     Dates: start: 20060823, end: 20090226
  15. ADVAIR [Concomitant]
     Indication: ASTHMA
     Dosage: 50 A?G, BID
     Dates: start: 20050407
  16. SPIRIVA [Concomitant]
     Indication: ASTHMA
     Dosage: 18 A?G, QD
     Dates: start: 20050407
  17. EPIPEN [Concomitant]
     Indication: HYPERSENSITIVITY
     Dosage: UNK
     Dates: start: 20050407
  18. ADVAIR [Concomitant]
     Dosage: 550 MG, QAM
  19. SINGULAIR [Concomitant]
     Indication: ASTHMA
     Dosage: 10 MG, QD
     Route: 048
     Dates: start: 20050407
  20. PREDNISONE [Concomitant]
     Dosage: 20 MG, BID
     Route: 048
     Dates: start: 20100212, end: 20100218
  21. BENICAR [Concomitant]
     Indication: HYPERTENSION
     Dosage: 40 MG, QAM
     Route: 048
  22. CONCOMITANT DRUG [Concomitant]
     Indication: ASTHMA
     Dosage: UNK

REACTIONS (4)
  - RESPIRATORY DISTRESS [None]
  - FLUSHING [None]
  - ANAPHYLACTIC REACTION [None]
  - PRURITUS [None]
